FAERS Safety Report 6739763-9 (Version None)
Quarter: 2010Q2

REPORT INFORMATION
  Report Type: 
  Country: None (occurrence: None)
  Receive Date: 20100521
  Receipt Date: 20100215
  Transmission Date: 20101027
  Serious: Yes (Other)
  Sender: FDA-Public Use
  Company Number: 20108727

PATIENT

DRUGS (1)
  1. LIORESAL [Suspect]
     Indication: MUSCLE SPASTICITY
     Dosage: 470 MCG, DAILY, INTRATHECAL
     Route: 037

REACTIONS (6)
  - DEVICE MALFUNCTION [None]
  - HYPERTONIA [None]
  - INCORRECT DOSE ADMINISTERED BY DEVICE [None]
  - NIGHT SWEATS [None]
  - UNDERDOSE [None]
  - WEIGHT DECREASED [None]
